FAERS Safety Report 7806362-7 (Version None)
Quarter: 2011Q4

REPORT INFORMATION
  Report Type: 
  Country: None (occurrence: None)
  Receive Date: 20111011
  Receipt Date: 20110928
  Transmission Date: 20120403
  Serious: Yes (Hospitalization, Other)
  Sender: FDA-Public Use
  Company Number: GB-ELI_LILLY_AND_COMPANY-GB201109008257

PATIENT
  Age: 48 Year
  Sex: Male

DRUGS (3)
  1. CLOZAPINE [Concomitant]
  2. ZYPREXA [Suspect]
     Indication: SCHIZOPHRENIA
  3. VENLAFAXINE [Concomitant]

REACTIONS (4)
  - BLOOD BILIRUBIN INCREASED [None]
  - LIVER FUNCTION TEST ABNORMAL [None]
  - ALANINE AMINOTRANSFERASE INCREASED [None]
  - JAUNDICE [None]
